FAERS Safety Report 5919981-X (Version None)
Quarter: 2008Q4

REPORT INFORMATION
  Report Type: 
  Country: None (occurrence: None)
  Receive Date: 20081014
  Receipt Date: 20081006
  Transmission Date: 20090506
  Serious: Yes (Hospitalization, Other)
  Sender: FDA-Public Use
  Company Number: 2008SP018974

PATIENT
  Age: 43 Year
  Sex: Female

DRUGS (3)
  1. PEG-INTRON [Suspect]
     Indication: HEPATITIS C
     Dosage: 120 MCG;QW; SC
     Route: 058
     Dates: start: 20080908
  2. REBETOL [Suspect]
     Indication: HEPATITIS C
     Dosage: 400 MG, BID; PO
     Route: 048
     Dates: start: 20080908
  3. ZOLOFT [Concomitant]

REACTIONS (13)
  - ASTHENIA [None]
  - CHROMATURIA [None]
  - DEHYDRATION [None]
  - DIZZINESS POSTURAL [None]
  - FALL [None]
  - HEADACHE [None]
  - JAW DISORDER [None]
  - LOSS OF CONSCIOUSNESS [None]
  - NAUSEA [None]
  - ORAL HERPES [None]
  - PLATELET COUNT DECREASED [None]
  - PYREXIA [None]
  - SINUSITIS [None]
